FAERS Safety Report 4710991-7 (Version None)
Quarter: 2005Q3

REPORT INFORMATION
  Report Type: 
  Country: None (occurrence: None)
  Receive Date: 20050711
  Receipt Date: 20050704
  Transmission Date: 20060218
  Serious: Yes (Other)
  Sender: FDA-Public Use
  Company Number: PHNR2005AU01049

PATIENT
  Age: 23 Year
  Sex: Female

DRUGS (2)
  1. TEGRETOL [Suspect]
     Dosage: 400 MG, QD
     Route: 048
  2. IMPLANON [Suspect]
     Dates: start: 20020219, end: 20050224

REACTIONS (2)
  - DRUG INTERACTION [None]
  - UNINTENDED PREGNANCY [None]
